FAERS Safety Report 4869968-3 (Version None)
Quarter: 2005Q4

REPORT INFORMATION
  Report Type: 
  Country: None (occurrence: None)
  Receive Date: 20051223
  Receipt Date: 20051206
  Transmission Date: 20060501
  Serious: Yes (Hospitalization)
  Sender: FDA-Public Use
  Company Number: US_0402100946

PATIENT
  Age: 41 Year
  Sex: Female
  Weight: 77.6 kg

DRUGS (13)
  1. HUMATROPE [Suspect]
     Indication: BLOOD GROWTH HORMONE DECREASED
     Dosage: 0.2 MG, DAILY (1/D), SUBCUTANEOUS
     Route: 058
     Dates: start: 19990601
  2. SYNTHROID [Concomitant]
  3. CORTEF [Concomitant]
  4. MULTI-VITAMIN [Concomitant]
  5. DDAVP [Concomitant]
  6. OMEPRAZOLE [Concomitant]
  7. CLARITIN [Concomitant]
  8. ST JOHN'S WORT (ST JOHN'S WORT) [Concomitant]
  9. GINKO BILOBA (GINKGO BILOBA) [Concomitant]
  10. VITAMIN E [Concomitant]
  11. ULTRAM [Concomitant]
  12. CALCIUM (CALCIUM) [Concomitant]
  13. EFFEXOR [Concomitant]

REACTIONS (5)
  - BLOOD PRESSURE SYSTOLIC INCREASED [None]
  - MENINGIOMA [None]
  - NEOPLASM PROGRESSION [None]
  - PARAESTHESIA [None]
  - THERAPEUTIC RESPONSE DECREASED [None]
